FAERS Safety Report 25846826 (Version 1)
Quarter: 2025Q3

REPORT INFORMATION
  Report Type: Spontaneous
  Country: CA (occurrence: CA)
  Receive Date: 20250925
  Receipt Date: 20250925
  Transmission Date: 20251020
  Serious: Yes (Other)
  Sender: ROCHE
  Company Number: CA-ROCHE-10000394813

PATIENT
  Age: 52 Year
  Sex: Male

DRUGS (13)
  1. ACTEMRA [Suspect]
     Active Substance: TOCILIZUMAB
     Indication: Castleman^s disease
     Route: 042
  2. RITUXIMAB [Suspect]
     Active Substance: RITUXIMAB
     Indication: Product used for unknown indication
     Route: 058
  3. ADEMETIONINE [Concomitant]
     Active Substance: ADEMETIONINE
  4. CALCIUM [Concomitant]
     Active Substance: CALCIUM
  5. ESOMEPRAZOLE MAGNESIUM [Concomitant]
     Active Substance: ESOMEPRAZOLE MAGNESIUM
  6. FOSAMAX [Concomitant]
     Active Substance: ALENDRONATE SODIUM
  7. FUROSEMIDE [Concomitant]
     Active Substance: FUROSEMIDE
  8. POTASSIUM CHLORIDE [Concomitant]
     Active Substance: POTASSIUM CHLORIDE
  9. PREDNISONE [Concomitant]
     Active Substance: PREDNISONE
  10. SIROLIMUS [Concomitant]
     Active Substance: SIROLIMUS
  11. SPIRONOLACTONE [Concomitant]
     Active Substance: SPIRONOLACTONE
  12. URSODIOL [Concomitant]
     Active Substance: URSODIOL
  13. VITAMIN D [Concomitant]
     Active Substance: VITAMIN D NOS

REACTIONS (5)
  - Ascites [Unknown]
  - Intra-abdominal fluid collection [Unknown]
  - Weight decreased [Unknown]
  - Weight increased [Unknown]
  - Off label use [Unknown]
